FAERS Safety Report 15594921 (Version 4)
Quarter: 2019Q1

REPORT INFORMATION
  Report Type: Report from Study
  Country: US (occurrence: US)
  Receive Date: 20181106
  Receipt Date: 20190121
  Transmission Date: 20190417
  Serious: Yes (Death, Hospitalization, Other)
  Sender: FDA-Public Use
  Company Number: US-BRISTOL-MYERS SQUIBB COMPANY-BMS-2018-102355

PATIENT
  Age: 63 Year
  Sex: Female
  Weight: 71.4 kg

DRUGS (4)
  1. IPILIMUMAB [Suspect]
     Active Substance: IPILIMUMAB
     Indication: TRANSITIONAL CELL CARCINOMA
     Dosage: 1 MG/KG=72.8 MG, OVER 90 MINUTES
     Route: 042
     Dates: start: 20181003
  2. DENOSUMAB [Suspect]
     Active Substance: DENOSUMAB
     Indication: PRODUCT USED FOR UNKNOWN INDICATION
     Dosage: UNK
     Route: 065
  3. CABOZANTINIB [Suspect]
     Active Substance: CABOZANTINIB
     Indication: TRANSITIONAL CELL CARCINOMA
     Dosage: 360 MG, QD
     Route: 048
     Dates: start: 20181003, end: 20181011
  4. NIVOLUMAB [Suspect]
     Active Substance: NIVOLUMAB
     Indication: TRANSITIONAL CELL CARCINOMA
     Dosage: 3 MG/KG=218 MG, OVER 60 MINUTES
     Route: 042
     Dates: start: 20181003

REACTIONS (10)
  - Nausea [Unknown]
  - Hypophosphataemia [Unknown]
  - Fatigue [Unknown]
  - Dehydration [Unknown]
  - Hypocalcaemia [Unknown]
  - Abdominal pain [Unknown]
  - Blood bilirubin increased [Unknown]
  - Malignant neoplasm progression [Fatal]
  - Aspartate aminotransferase increased [Unknown]
  - Hyponatraemia [Unknown]

NARRATIVE: CASE EVENT DATE: 20181011
